FAERS Safety Report 10818671 (Version 4)
Quarter: 2015Q1

REPORT INFORMATION
  Report Type: Report from Study
  Country: US (occurrence: US)
  Receive Date: 20150218
  Receipt Date: 20150325
  Transmission Date: 20150721
  Serious: Yes (Hospitalization)
  Sender: FDA-Public Use
  Company Number: US-ACTELION-A-US2015-113134

PATIENT
  Age: 39 Year
  Sex: Male

DRUGS (6)
  1. VELETRI [Suspect]
     Active Substance: EPOPROSTENOL
     Indication: PULMONARY ARTERIAL HYPERTENSION
     Dosage: 68 NG/KG, PER MIN
     Route: 042
     Dates: start: 201403
  2. OXYGEN. [Concomitant]
     Active Substance: OXYGEN
  3. REVATIO [Concomitant]
     Active Substance: SILDENAFIL CITRATE
  4. MACITENTAN [Suspect]
     Active Substance: MACITENTAN
     Indication: PULMONARY ARTERIAL HYPERTENSION
     Dosage: 10 UNK, UNK
     Route: 048
     Dates: start: 201502, end: 20150306
  5. WARFARIN [Concomitant]
     Active Substance: WARFARIN
  6. MACITENTAN [Suspect]
     Active Substance: MACITENTAN
     Dosage: 10 MG, QD
     Route: 048
     Dates: start: 20150106

REACTIONS (6)
  - Weight decreased [Unknown]
  - Oxygen saturation decreased [Unknown]
  - Angioedema [Not Recovered/Not Resolved]
  - Gastrointestinal disorder [Recovered/Resolved]
  - Abdominal distension [Unknown]
  - Ascites [Unknown]

NARRATIVE: CASE EVENT DATE: 20150118
